FAERS Safety Report 8336847-9 (Version None)
Quarter: 2012Q2

REPORT INFORMATION
  Report Type: 
  Country: None (occurrence: None)
  Receive Date: 20120504
  Receipt Date: 20120427
  Transmission Date: 20120825
  Serious: Yes (Death, Life-Threatening)
  Sender: FDA-Public Use
  Company Number: JP-CELGENEUS-087-50794-12011899

PATIENT
  Sex: Female
  Weight: 43 kg

DRUGS (7)
  1. VIDAZA [Suspect]
     Dosage: 75 MILLIGRAM/SQ. METER
     Route: 041
     Dates: start: 20111219, end: 20111225
  2. DIGOXIN [Concomitant]
     Route: 065
  3. PREDNISOLONE [Concomitant]
     Route: 065
  4. RABEPRAZOLE SODIUM [Concomitant]
     Route: 065
  5. VERAPAMIL HCL [Concomitant]
     Route: 065
  6. DIOVAN [Concomitant]
     Route: 065
  7. OMEPRAZOLE [Concomitant]
     Route: 065

REACTIONS (5)
  - OLIGURIA [None]
  - DECREASED APPETITE [None]
  - SHOCK [None]
  - ABDOMINAL DISCOMFORT [None]
  - ABDOMINAL PAIN [None]
